FAERS Safety Report 8150603-6 (Version None)
Quarter: 2012Q1

REPORT INFORMATION
  Report Type: 
  Country: None (occurrence: None)
  Receive Date: 20120220
  Receipt Date: 20120208
  Transmission Date: 20120608
  Serious: Yes (Hospitalization)
  Sender: FDA-Public Use
  Company Number: PHHO2011BE09799

PATIENT
  Sex: Male
  Weight: 19.5 kg

DRUGS (3)
  1. OMEPRAZOLE [Concomitant]
  2. ILARIS [Suspect]
     Indication: JUVENILE ARTHRITIS
     Dosage: 4 MG/KG, ONCE EVERY 4 WEEKS
     Route: 048
     Dates: start: 20101124, end: 20110622
  3. METHYLPREDNISOLONE [Concomitant]
     Indication: JUVENILE ARTHRITIS

REACTIONS (2)
  - HEPATITIS [None]
  - ARTHRALGIA [None]
